FAERS Safety Report 4692549-1 (Version None)
Quarter: 2005Q2

REPORT INFORMATION
  Report Type: 
  Country: None (occurrence: None)
  Receive Date: 20050617
  Receipt Date: 20050606
  Transmission Date: 20051028
  Serious: Yes (Life-Threatening)
  Sender: FDA-Public Use
  Company Number: US-JNJFOC-20050601900

PATIENT
  Age: 8 Year

DRUGS (1)
  1. CONCERTA [Suspect]
     Route: 049

REACTIONS (1)
  - GRAND MAL CONVULSION [None]
